FAERS Safety Report 23607729 (Version 1)
Quarter: 2024Q1

REPORT INFORMATION
  Report Type: Spontaneous
  Country: IT (occurrence: IT)
  Receive Date: 20240307
  Receipt Date: 20240307
  Transmission Date: 20240410
  Serious: Yes (Hospitalization, Other)
  Sender: FDA-Public Use
  Company Number: None

PATIENT
  Age: 71 Year
  Sex: Female

DRUGS (4)
  1. LYRICA [Suspect]
     Active Substance: PREGABALIN
     Indication: Neuralgia
     Dosage: 8 DOSAGE FORM (75 MG/DAY DOSE TAKEN FOR SELF-INJURY PURPOSE: 8 CAPSULES OF 75 MG)
     Route: 048
  2. DULOXETINE [Suspect]
     Active Substance: DULOXETINE
     Indication: Depression
     Dosage: 12 DOSAGE FORM (60 MG/DAY DOSE TAKEN FOR SELF-INJURY PURPOSE: 12 CAPSULES OF 60 MG)
     Route: 048
  3. TRAMADOL HYDROCHLORIDE [Suspect]
     Active Substance: TRAMADOL HYDROCHLORIDE
     Indication: Pain
     Dosage: USUAL THERAPY: 40 DROPS/DAY DOSE TAKEN FOR SELF-INJURY PURPOSE: 1 BOTTLE OF DROPS
     Route: 048
  4. RIVOTRIL [Suspect]
     Active Substance: CLONAZEPAM
     Indication: Product used for unknown indication
     Dosage: USUAL THERAPY: 10 DROPS/DAY DOSE TAKEN FOR SELF-INJURY PURPOSE: 1 BOTTLE OF DROPS
     Route: 048

REACTIONS (3)
  - Sopor [Recovered/Resolved]
  - Intentional self-injury [Recovered/Resolved]
  - Drug abuse [Recovered/Resolved]

NARRATIVE: CASE EVENT DATE: 20240218
